FAERS Safety Report 9940585 (Version 1)
Quarter: 2014Q1

REPORT INFORMATION
  Report Type: Spontaneous
  Country: JP (occurrence: JP)
  Receive Date: 20140303
  Receipt Date: 20140303
  Transmission Date: 20141002
  Serious: Yes (Life-Threatening, Hospitalization)
  Sender: FDA-Public Use
  Company Number: JP-MYLANLABS-2014S1003988

PATIENT
  Age: 82 Year
  Sex: Female

DRUGS (3)
  1. METHOTREXATE [Suspect]
     Indication: RHEUMATOID ARTHRITIS
     Dosage: 8MG/WEEK
     Route: 065
  2. LOXOPROFEN [Concomitant]
     Indication: RHEUMATOID ARTHRITIS
     Dosage: 180MG/DAY
     Route: 065
  3. PREDNISOLONE [Concomitant]
     Indication: RHEUMATOID ARTHRITIS
     Dosage: 4-6MG/DAY
     Route: 065

REACTIONS (7)
  - Gastrointestinal mucosal necrosis [Recovering/Resolving]
  - Oesophageal stenosis [Recovering/Resolving]
  - Large intestinal stenosis [Recovering/Resolving]
  - Mucosal inflammation [Unknown]
  - Pyrexia [Unknown]
  - Staphylococcal infection [Unknown]
  - Pancytopenia [Unknown]
